FAERS Safety Report 26112213 (Version 1)
Quarter: 2025Q4

REPORT INFORMATION
  Report Type: Spontaneous
  Country: US (occurrence: US)
  Receive Date: 20251202
  Receipt Date: 20251202
  Transmission Date: 20260117
  Serious: No
  Sender: SPRINGWORKS THERAPEUTIC
  Company Number: US-SPRINGWORKS THERAPEUTICS-SW-003351

PATIENT
  Age: 19 Year
  Sex: Female

DRUGS (3)
  1. GOMEKLI [Suspect]
     Active Substance: MIRDAMETINIB
     Indication: Neurofibromatosis
     Dosage: 2 DOSAGE FORM, BID
     Dates: start: 202507
  2. GOMEKLI [Suspect]
     Active Substance: MIRDAMETINIB
     Indication: Central nervous system neoplasm
     Dosage: 2 MILLIGRAM  BID
     Dates: start: 20250808
  3. GABAPENTIN [Concomitant]
     Active Substance: GABAPENTIN
     Indication: Product used for unknown indication

REACTIONS (3)
  - Skin burning sensation [Recovered/Resolved]
  - Decreased immune responsiveness [Unknown]
  - Illness [Unknown]

NARRATIVE: CASE EVENT DATE: 20250802
